FAERS Safety Report 17078555 (Version 2)
Quarter: 2019Q4

REPORT INFORMATION
  Report Type: Report from Study
  Country: US (occurrence: US)
  Receive Date: 20191126
  Receipt Date: 20191227
  Transmission Date: 20200122
  Serious: Yes (Hospitalization, Other)
  Sender: FDA-Public Use
  Company Number: US-BRISTOL-MYERS SQUIBB COMPANY-BMS-2019-112304

PATIENT
  Age: 60 Year
  Sex: Male
  Weight: 98.2 kg

DRUGS (2)
  1. REGORAFENIB. [Suspect]
     Active Substance: REGORAFENIB
     Indication: COLON CANCER METASTATIC
     Dosage: 80 MILLIGRAM, QD
     Route: 048
     Dates: start: 20191107
  2. NIVOLUMAB [Suspect]
     Active Substance: NIVOLUMAB
     Indication: COLON CANCER METASTATIC
     Dosage: 240 MILLIGRAM, Q2WK
     Route: 042
     Dates: start: 20191107

REACTIONS (2)
  - Liver function test increased [Unknown]
  - Hepatic encephalopathy [Unknown]

NARRATIVE: CASE EVENT DATE: 20191117
